FAERS Safety Report 12111112 (Version 1)
Quarter: 2016Q1

REPORT INFORMATION
  Report Type: Spontaneous
  Country: CN (occurrence: CN)
  Receive Date: 20160224
  Receipt Date: 20160224
  Transmission Date: 20160526
  Serious: Yes (Death)
  Sender: FDA-Public Use
  Company Number: CN-MYLANLABS-2016M1007408

PATIENT

DRUGS (6)
  1. ETHIODIZED OIL [Concomitant]
     Active Substance: ETHIODIZED OIL
     Indication: THERAPEUTIC EMBOLISATION
  2. HEPARIN [Concomitant]
     Active Substance: HEPARIN SODIUM
     Indication: PRODUCT USED FOR UNKNOWN INDICATION
     Dosage: HIGH-CONCENTRATION HEPARIN SUPPLEMENTED NORMAL SALINE (HEPARIN 125 U/ML)
  3. OXALIPLATIN. [Suspect]
     Active Substance: OXALIPLATIN
     Indication: METASTASES TO LIVER
     Dosage: 150 MG, INFUSION THROUGH ARTERY, 0-4 H, ON DAY 1 EVERY 6 WEEKS
     Route: 013
  4. FOLINIC ACID [Suspect]
     Active Substance: LEUCOVORIN
     Indication: METASTASES TO LIVER
     Dosage: IV GUTTAE 300MG 2-4 H ON DAY 1 EVERY 6 WEEKS
     Route: 042
  5. BEVACIZUMAB [Suspect]
     Active Substance: BEVACIZUMAB
     Indication: METASTASES TO LIVER
     Dosage: 300 OR 400MG, INFUSION THROUGH ARTERY, 48-49 H, ON DAY 1 EVERY 6 WEEKS
     Route: 013
  6. FLUOROURACIL. [Suspect]
     Active Substance: FLUOROURACIL
     Indication: METASTASES TO LIVER
     Dosage: 3.5G, INFUSION THROUGH ARTERY, 4-48 H, ON DAY 1 EVERY 6 WEEKS
     Route: 013

REACTIONS (1)
  - Bone marrow failure [Fatal]
